FAERS Safety Report 5221476-6 (Version None)
Quarter: 2007Q1

REPORT INFORMATION
  Report Type: 
  Country: None (occurrence: None)
  Receive Date: 20070126
  Receipt Date: 20070116
  Transmission Date: 20070707
  Serious: Yes (Hospitalization)
  Sender: FDA-Public Use
  Company Number: GB-PFIZER INC-2007004908

PATIENT
  Age: 65 Year
  Sex: Female

DRUGS (3)
  1. PHENYTOIN [Suspect]
     Indication: EPILEPSY
     Dosage: DAILY DOSE:300MG
     Route: 048
  2. VALPROATE SODIUM [Suspect]
     Indication: MOOD ALTERED
     Dosage: DAILY DOSE:900MG
     Route: 048
  3. ANASTROZOLE [Concomitant]
     Route: 048

REACTIONS (2)
  - RASH ERYTHEMATOUS [None]
  - RASH PRURITIC [None]
